FAERS Safety Report 6251113-3 (Version None)
Quarter: 2009Q2

REPORT INFORMATION
  Report Type: 
  Country: None (occurrence: None)
  Receive Date: 20090630
  Receipt Date: 20090619
  Transmission Date: 20091009
  Serious: Yes (Hospitalization)
  Sender: FDA-Public Use
  Company Number: US-WYE-H09661809

PATIENT
  Sex: Female
  Weight: 74.91 kg

DRUGS (3)
  1. DESVENLAFAXINE SUCCINATE MONOHYDRATE [Suspect]
     Indication: MENOPAUSAL SYMPTOMS
     Route: 048
     Dates: start: 20080904, end: 20080910
  2. DESVENLAFAXINE SUCCINATE MONOHYDRATE [Suspect]
     Route: 048
     Dates: start: 20080911, end: 20090410
  3. LIPITOR [Concomitant]
     Indication: HYPERCHOLESTEROLAEMIA
     Dates: start: 20060101

REACTIONS (10)
  - AGEUSIA [None]
  - ERYTHEMA [None]
  - HYPERTENSION [None]
  - HYPOAESTHESIA [None]
  - PAIN IN EXTREMITY [None]
  - PARAESTHESIA [None]
  - PRURITUS [None]
  - RASH [None]
  - STOMATITIS [None]
  - SWOLLEN TONGUE [None]
